FAERS Safety Report 8859232 (Version 2)
Quarter: 2012Q4

REPORT INFORMATION
  Report Type: 
  Country: US (occurrence: US)
  Receive Date: 20121024
  Receipt Date: 20121119
  Transmission Date: 20130627
  Serious: No
  Sender: FDA-Public Use
  Company Number: US-ROXANE LABORATORIES, INC.-2012-RO-02000RO

PATIENT
  Sex: Male

DRUGS (7)
  1. FLUTICASONE [Suspect]
     Indication: SEASONAL ALLERGY
     Route: 045
  2. VYTORIN [Concomitant]
  3. LISINOPRIL [Concomitant]
  4. CYCLOBENZAPRINE [Concomitant]
  5. FISH OIL [Concomitant]
  6. CQ10 [Concomitant]
  7. VITAMIN D [Concomitant]

REACTIONS (2)
  - Drug ineffective [Recovered/Resolved]
  - Product quality issue [Unknown]
